FAERS Safety Report 7901070-6 (Version None)
Quarter: 2011Q4

REPORT INFORMATION
  Report Type: 
  Country: None (occurrence: None)
  Receive Date: 20111108
  Receipt Date: 20111101
  Transmission Date: 20120403
  Serious: Yes (Hospitalization)
  Sender: FDA-Public Use
  Company Number: US-ELI_LILLY_AND_COMPANY-US201111001022

PATIENT

DRUGS (6)
  1. VITAMIN B-12 [Concomitant]
     Indication: SUPPLEMENTATION THERAPY
  2. FOLIC ACID [Concomitant]
     Indication: SUPPLEMENTATION THERAPY
  3. PEMETREXED [Suspect]
     Dosage: 500 MG/M2, UNK
  4. PEMETREXED [Suspect]
     Indication: HEAD AND NECK CANCER
     Dosage: 500 MG/M2, EVERY TWO WEEKS FOR EIGHT WEEKS
  5. GEMCITABINE HYDROCHLORIDE [Suspect]
     Indication: HEAD AND NECK CANCER
     Dosage: 1500 MG/M2, UNK
  6. CARBOPLATIN [Concomitant]
     Indication: HEAD AND NECK CANCER

REACTIONS (5)
  - DEHYDRATION [None]
  - THROMBOSIS [None]
  - TOXICITY TO VARIOUS AGENTS [None]
  - HAEMATEMESIS [None]
  - NEUTROPENIA [None]
